FAERS Safety Report 8359163-8 (Version None)
Quarter: 2012Q2

REPORT INFORMATION
  Report Type: 
  Country: None (occurrence: None)
  Receive Date: 20120511
  Receipt Date: 20120503
  Transmission Date: 20120825
  Serious: Yes (Death, Hospitalization, Other)
  Sender: FDA-Public Use
  Company Number: FK201200822

PATIENT
  Age: 27 Year
  Sex: Female

DRUGS (8)
  1. HALOPERIDOL [Suspect]
     Indication: AGITATION
     Dosage: 5 MG, ONCE, INTRAMUSCULAR
     Route: 030
  2. SERTRALINE HYDROCHLORIDE [Suspect]
     Indication: HALLUCINATION, AUDITORY
     Dosage: 50 MG, A DOSE, 50 MG, DAILY, 50 MG
  3. SERTRALINE HYDROCHLORIDE [Suspect]
     Indication: PRODUCT USED FOR UNKNOWN INDICATION
     Dosage: 50 MG, A DOSE, 50 MG, DAILY, 50 MG
  4. SERTRALINE HYDROCHLORIDE [Suspect]
     Indication: DEPRESSION
     Dosage: 50 MG, A DOSE, 50 MG, DAILY, 50 MG
  5. LORAZEPAM [Suspect]
     Indication: CATATONIA
     Dosage: 2 MG, INTRAVENOUS (NOT OTHERWISE SPECIFIED), 2 MG, SINGLE DOSE, INTRAMUSCULAR, 1 MG
     Route: 042
  6. LORAZEPAM [Suspect]
     Indication: AGITATION
     Dosage: 2 MG, INTRAVENOUS (NOT OTHERWISE SPECIFIED), 2 MG, SINGLE DOSE, INTRAMUSCULAR, 1 MG
     Route: 042
  7. RISPERIDONE [Suspect]
     Indication: PRODUCT USED FOR UNKNOWN INDICATION
     Dosage: 0.5 MG, BEDTIME
  8. QUETIAPINE FUMARATE [Suspect]
     Indication: PRODUCT USED FOR UNKNOWN INDICATION
     Dosage: 25 MG

REACTIONS (17)
  - MENTAL STATUS CHANGES [None]
  - AGITATION [None]
  - DEPRESSED MOOD [None]
  - UNRESPONSIVE TO STIMULI [None]
  - PULMONARY EMBOLISM [None]
  - PSYCHOMOTOR RETARDATION [None]
  - BLOOD PRESSURE DECREASED [None]
  - HEART RATE INCREASED [None]
  - STUPOR [None]
  - MUTISM [None]
  - POOR QUALITY SLEEP [None]
  - KETONURIA [None]
  - APPETITE DISORDER [None]
  - CARDIO-RESPIRATORY ARREST [None]
  - CATATONIA [None]
  - HALLUCINATION, AUDITORY [None]
  - BLOOD GLUCOSE INCREASED [None]
